FAERS Safety Report 5366903-9 (Version None)
Quarter: 2007Q2

REPORT INFORMATION
  Report Type: 
  Country: None (occurrence: None)
  Receive Date: 20070622
  Receipt Date: 20070201
  Transmission Date: 20071010
  Serious: No
  Sender: FDA-Public Use
  Company Number: US-ASTRAZENECA-2007UW02128

PATIENT
  Sex: Male

DRUGS (4)
  1. RHINOCORT [Suspect]
     Indication: LUNG DISORDER
     Dosage: 1 SPRAY EACH NOSTRIL
     Route: 045
  2. RHINOCORT [Suspect]
     Indication: DYSPHONIA
     Dosage: 1 SPRAY EACH NOSTRIL
     Route: 045
  3. SPIRIVA [Concomitant]
  4. XYLOTOCAN [Concomitant]

REACTIONS (2)
  - CARDIAC DISORDER [None]
  - SWELLING FACE [None]
